FAERS Safety Report 8203882-0 (Version None)
Quarter: 2012Q1

REPORT INFORMATION
  Report Type: 
  Country: None (occurrence: None)
  Receive Date: 20120313
  Receipt Date: 20120305
  Transmission Date: 20120608
  Serious: Yes (Hospitalization)
  Sender: FDA-Public Use
  Company Number: US-BAYER-2012-006378

PATIENT
  Age: 22 Year
  Sex: Female
  Weight: 64.853 kg

DRUGS (7)
  1. CYCLOBENZAPRINE HCL [Concomitant]
  2. TAMIFLU [Concomitant]
     Dosage: 75 MG, BID
  3. HYDROCHLORIDE [Concomitant]
  4. YAZ [Suspect]
     Indication: CONTRACEPTION
     Dosage: UNK
     Dates: start: 20090101, end: 20090701
  5. YAZ [Suspect]
     Dosage: UNK
     Dates: start: 20091201, end: 20120201
  6. ALBUTEROL [Concomitant]
  7. NAPROSYN [Concomitant]
     Dosage: 500 MG, BID AS NEEDED

REACTIONS (3)
  - CHOLECYSTITIS [None]
  - INJURY [None]
  - CHOLECYSTITIS ACUTE [None]
